FAERS Safety Report 9525995 (Version 1)
Quarter: 2013Q1

REPORT INFORMATION
  Report Type: Spontaneous
  Country: US (occurrence: None)
  Receive Date: 20130314
  Receipt Date: 20130314
  Transmission Date: 20140127
  Serious: No
  Sender: FDA-Public Use
  Company Number: 1301USA003114

PATIENT
  Age: 63 Year
  Sex: Female

DRUGS (3)
  1. VICTRELIS (BOCEPREVIR) CAPSULE, 200MG [Suspect]
     Dosage: 800 MG, TID, ORAL
     Route: 048
     Dates: start: 20121203
  2. PEGASYS (PEGINTERFERON ALFA-2A) [Suspect]
  3. RIBAPAK [Suspect]

REACTIONS (3)
  - Dysgeusia [None]
  - Diarrhoea [None]
  - Fatigue [None]
